FAERS Safety Report 5558570-6 (Version None)
Quarter: 2007Q4

REPORT INFORMATION
  Report Type: 
  Country: None (occurrence: None)
  Receive Date: 20071130
  Receipt Date: 20070831
  Transmission Date: 20080405
  Serious: No
  Sender: FDA-Public Use
  Company Number: US200709000231

PATIENT
  Age: 71 Year
  Sex: Female

DRUGS (1)
  1. BYETTA [Suspect]
     Dosage: SUBCUTANEOUS
     Route: 058
     Dates: start: 20070503

REACTIONS (4)
  - BLOOD GLUCOSE INCREASED [None]
  - KIDNEY INFECTION [None]
  - PHARYNGOLARYNGEAL PAIN [None]
  - TREMOR [None]
